FAERS Safety Report 5526585-X (Version None)
Quarter: 2007Q4

REPORT INFORMATION
  Report Type: 
  Country: None (occurrence: None)
  Receive Date: 20071121
  Receipt Date: 20071121
  Transmission Date: 20080405
  Serious: Yes (Hospitalization)
  Sender: FDA-Public Use
  Company Number: None

PATIENT
  Sex: Female
  Weight: 97.72 kg

DRUGS (1)
  1. CISPLATIN [Suspect]
     Dosage: 70 MG
     Dates: end: 20070827

REACTIONS (6)
  - CATHETER SITE ERYTHEMA [None]
  - CATHETER SITE PAIN [None]
  - CATHETER SITE RELATED REACTION [None]
  - DEEP VEIN THROMBOSIS [None]
  - PYREXIA [None]
  - SWELLING [None]
